FAERS Safety Report 9421292 (Version 1)
Quarter: 2013Q3

REPORT INFORMATION
  Report Type: Spontaneous
  Country: ES (occurrence: ES)
  Receive Date: 20130725
  Receipt Date: 20130725
  Transmission Date: 20140515
  Serious: Yes (Hospitalization)
  Sender: FDA-Public Use
  Company Number: ES-ABBOTT-13P-144-1120602-00

PATIENT
  Age: 36 Year
  Sex: Male

DRUGS (4)
  1. NORVIR [Suspect]
     Indication: HIV INFECTION
     Route: 048
     Dates: start: 20120904, end: 2013
  2. INTELENCE [Interacting]
     Indication: HIV INFECTION
     Route: 048
     Dates: start: 20130528, end: 20130620
  3. ISENTRESS [Interacting]
     Indication: HIV INFECTION
     Route: 048
     Dates: start: 20120904, end: 20130620
  4. PREZISTA [Interacting]
     Indication: HIV INFECTION
     Route: 048
     Dates: start: 20120904, end: 2013

REACTIONS (2)
  - Hepatotoxicity [Recovering/Resolving]
  - Drug interaction [Unknown]
